FAERS Safety Report 6130267-3 (Version None)
Quarter: 2009Q1

REPORT INFORMATION
  Report Type: 
  Country: None (occurrence: None)
  Receive Date: 20090324
  Receipt Date: 20090317
  Transmission Date: 20090719
  Serious: Yes (Hospitalization)
  Sender: FDA-Public Use
  Company Number: PHHY2008IT28437

PATIENT
  Sex: Female

DRUGS (12)
  1. METHERGINE [Suspect]
     Indication: CAESAREAN SECTION
     Dosage: 1 VIAL
     Dates: start: 20080801
  2. METHERGINE [Suspect]
     Dosage: 2 VIALS
  3. SYNTOCINON [Suspect]
     Dosage: 20 I.U. , E.V.
     Dates: start: 20080801
  4. ATROPINE SULFATE [Suspect]
     Dosage: 0.5 MG E.V.
     Dates: start: 20080801
  5. BENTELAN [Suspect]
     Indication: ANAESTHESIA
     Dosage: 4MG/2ML E.V.
     Dates: start: 20080801
  6. SODIUM CHLORIDE [Suspect]
     Indication: CAESAREAN SECTION
     Dosage: 2 L , E.V.
     Dates: start: 20080801
  7. BUPIVACAINE [Suspect]
     Dosage: UNK
     Dates: start: 20080801
  8. EMAGEL [Suspect]
     Dosage: 1 L, E.V.
     Dates: start: 20080801
  9. DEXTROSE 5% [Suspect]
     Dosage: 500 ML, 1 L, E.V.
     Dates: start: 20080801
  10. CEFAZOLIN AND DEXTROSE [Concomitant]
     Route: 042
  11. PARACETAMOL [Concomitant]
  12. TRANEX [Concomitant]

REACTIONS (3)
  - DISSEMINATED INTRAVASCULAR COAGULATION [None]
  - HYPERPYREXIA [None]
  - HYSTERECTOMY [None]
